FAERS Safety Report 4305020-3 (Version None)
Quarter: 2004Q1

REPORT INFORMATION
  Report Type: 
  Country: None (occurrence: None)
  Receive Date: 20040223
  Receipt Date: 20030709
  Transmission Date: 20041129
  Serious: Yes (Hospitalization)
  Sender: FDA-Public Use
  Company Number: TAP2003Q01637

PATIENT
  Age: 63 Year
  Sex: Male

DRUGS (7)
  1. LUPRON DEPOT-4 [Suspect]
     Indication: PROSTATE CANCER
     Dosage: 30 MG, 1 IN 1 4 M, INTRAMUSCULAR
     Route: 030
     Dates: start: 20030709
  2. DITROPAN [Concomitant]
  3. FLONASE [Concomitant]
  4. ALLEGRA [Concomitant]
  5. CARDURA [Concomitant]
  6. PENTOXIFYLLINE [Concomitant]
  7. PROSCAR [Concomitant]

REACTIONS (4)
  - ANXIETY [None]
  - DIZZINESS [None]
  - HEADACHE [None]
  - PAIN [None]
